FAERS Safety Report 7405228-4 (Version None)
Quarter: 2011Q1

REPORT INFORMATION
  Report Type: 
  Country: None (occurrence: None)
  Receive Date: 20110330
  Receipt Date: 20110315
  Transmission Date: 20110831
  Serious: Yes (Other)
  Sender: FDA-Public Use
  Company Number: 2011SP000100

PATIENT
  Age: 76 Year
  Sex: Female

DRUGS (1)
  1. ADENOSINE [Suspect]
     Indication: SCAN MYOCARDIAL PERFUSION
     Dosage: 140 UG/KG/MIN;IV
     Route: 042

REACTIONS (4)
  - MYOCARDIAL ISCHAEMIA [None]
  - ELECTROCARDIOGRAM ST SEGMENT ELEVATION [None]
  - BLOOD PRESSURE DECREASED [None]
  - CORONARY ARTERY STENOSIS [None]
